FAERS Safety Report 16929115 (Version 1)
Quarter: 2019Q4

REPORT INFORMATION
  Report Type: Report from Study
  Country: GB (occurrence: GB)
  Receive Date: 20191017
  Receipt Date: 20191017
  Transmission Date: 20200122
  Serious: Yes (Other)
  Sender: FDA-Public Use
  Company Number: NVSC2019GB004869

PATIENT
  Sex: Male

DRUGS (1)
  1. COSENTYX [Suspect]
     Active Substance: SECUKINUMAB
     Indication: PSORIATIC ARTHROPATHY
     Dosage: 300 MG, ON WEEKS 0, 1, 2, 3, 4 AND FOLLOWED BY QMO (PRIFILLED PEN)
     Route: 058

REACTIONS (1)
  - Neoplasm malignant [Unknown]
